FAERS Safety Report 8770066 (Version 2)
Quarter: 2013Q4

REPORT INFORMATION
  Report Type: Spontaneous
  Country: NO (occurrence: NO)
  Receive Date: 20120905
  Receipt Date: 20131031
  Transmission Date: 20140711
  Serious: Yes (Other)
  Sender: FDA-Public Use
  Company Number: NO-009507513-1208NOR011745

PATIENT
  Age: 73 Year
  Sex: Female

DRUGS (8)
  1. FOSAMAX [Suspect]
     Indication: OSTEOPOROSIS PROPHYLAXIS
     Dosage: UNK
     Route: 048
     Dates: start: 2006, end: 201205
  2. COAPROVEL [Concomitant]
     Dosage: UNK
  3. SOMAC [Concomitant]
     Dosage: UNK
  4. ALBYL-E [Concomitant]
     Dosage: UNK
  5. PREDNISOLON [Concomitant]
     Dosage: UNK
  6. SIMVASTATIN [Concomitant]
     Dosage: UNK
  7. FOLIC ACID [Concomitant]
     Dosage: UNK
  8. METHOTREXATE [Concomitant]
     Dosage: UNK

REACTIONS (3)
  - Femur fracture [Unknown]
  - Fracture [Unknown]
  - Pain in extremity [Unknown]
